FAERS Safety Report 6663824-6 (Version None)
Quarter: 2010Q2

REPORT INFORMATION
  Report Type: 
  Country: None (occurrence: None)
  Receive Date: 20100401
  Receipt Date: 20100322
  Transmission Date: 20101027
  Serious: Yes (Other)
  Sender: FDA-Public Use
  Company Number: US-BAYER-201013453BCC

PATIENT
  Sex: Male
  Weight: 86 kg

DRUGS (5)
  1. ALKA-SELTZER ORIGINAL TABLETS [Suspect]
     Indication: DYSPEPSIA
     Dosage: UNIT DOSE: 1 DF
     Route: 048
  2. ALKA-SELTZER ORIGINAL TABLETS [Suspect]
     Dosage: UNIT DOSE: 1 DF
     Route: 048
  3. ALKA-SELTZER PLUS [Concomitant]
     Indication: NASOPHARYNGITIS
     Route: 048
  4. ALKA-SELTZER GOLD [Concomitant]
     Route: 048
  5. ALKA-SELTZER HEARTBURN RELIEF [Concomitant]

REACTIONS (4)
  - BLOOD COUNT ABNORMAL [None]
  - GASTRIC HAEMORRHAGE [None]
  - GASTRIC ULCER [None]
  - HAEMATEMESIS [None]
